FAERS Safety Report 11914600 (Version 1)
Quarter: 2016Q1

REPORT INFORMATION
  Report Type: Spontaneous
  Country: AT (occurrence: AT)
  Receive Date: 20160113
  Receipt Date: 20160113
  Transmission Date: 20160526
  Serious: Yes (Other)
  Sender: FDA-Public Use
  Company Number: AT-B.I. PHARMACEUTICALS,INC./RIDGEFIELD-2015-BI-69442BE

PATIENT
  Age: 73 Year
  Sex: Female
  Weight: 57 kg

DRUGS (1)
  1. PRADAXA [Suspect]
     Active Substance: DABIGATRAN ETEXILATE MESYLATE
     Indication: HIP SURGERY
     Dosage: 150 MG
     Route: 065
     Dates: start: 20151126, end: 20151226

REACTIONS (5)
  - Rectal haemorrhage [Unknown]
  - Haematochezia [Recovered/Resolved]
  - Gastrointestinal tract adenoma [Unknown]
  - Neoplasm [Unknown]
  - Gastrointestinal haemorrhage [Recovered/Resolved]

NARRATIVE: CASE EVENT DATE: 201512
